FAERS Safety Report 7153083-2 (Version None)
Quarter: 2010Q4

REPORT INFORMATION
  Report Type: 
  Country: None (occurrence: None)
  Receive Date: 20101209
  Receipt Date: 20101209
  Transmission Date: 20110411
  Serious: Yes (Hospitalization)
  Sender: FDA-Public Use
  Company Number: None

PATIENT
  Age: 40 Year
  Sex: Male
  Weight: 104.3273 kg

DRUGS (1)
  1. XOLAIR [Suspect]
     Dosage: 225 MG Q2 WK SQ X ONE
     Dates: start: 20100902

REACTIONS (4)
  - DYSPHAGIA [None]
  - DYSPNOEA [None]
  - PAIN IN JAW [None]
  - WHEEZING [None]
